FAERS Safety Report 8479667-7 (Version None)
Quarter: 2012Q2

REPORT INFORMATION
  Report Type: 
  Country: None (occurrence: None)
  Receive Date: 20120629
  Receipt Date: 20120615
  Transmission Date: 20120825
  Serious: Yes (Other)
  Sender: FDA-Public Use
  Company Number: CHPA2012US013090

PATIENT
  Age: 70 Year
  Sex: Female

DRUGS (1)
  1. EXCEDRIN EXTRA STRENGTH TABLETS [Suspect]
     Indication: PAIN
     Dosage: WHATEVER THE LIMIT WAS
     Route: 048

REACTIONS (4)
  - HYPERSENSITIVITY [None]
  - OFF LABEL USE [None]
  - UPPER LIMB FRACTURE [None]
  - COUGH [None]
